FAERS Safety Report 13314682 (Version 1)
Quarter: 2017Q1

REPORT INFORMATION
  Report Type: Spontaneous
  Country: US (occurrence: US)
  Receive Date: 20170309
  Receipt Date: 20170309
  Transmission Date: 20170428
  Serious: No
  Sender: FDA-Public Use
  Company Number: GXBR2016US003376

PATIENT
  Sex: Male

DRUGS (2)
  1. LISINOPRIL TABLETS, USP [Suspect]
     Active Substance: LISINOPRIL
     Indication: PRODUCT USED FOR UNKNOWN INDICATION
     Dosage: 10 MG, UNK
     Route: 048
  2. LISINOPRIL TABLETS, USP [Suspect]
     Active Substance: LISINOPRIL
     Dosage: 5 MG, UNK
     Route: 048

REACTIONS (3)
  - Hypotension [Unknown]
  - Loss of consciousness [Unknown]
  - Dizziness [Unknown]
